FAERS Safety Report 25330624 (Version 3)
Quarter: 2025Q3

REPORT INFORMATION
  Report Type: Spontaneous
  Country: CA (occurrence: CA)
  Receive Date: 20250519
  Receipt Date: 20250804
  Transmission Date: 20251021
  Serious: Yes (Hospitalization, Other)
  Sender: PFIZER
  Company Number: CA-PFIZER INC-202500099604

PATIENT
  Age: 38 Year
  Sex: Female

DRUGS (3)
  1. ABRILADA [Suspect]
     Active Substance: ADALIMUMAB-AFZB
     Indication: Crohn^s disease
     Route: 058
     Dates: start: 20241205
  2. ABRILADA [Suspect]
     Active Substance: ADALIMUMAB-AFZB
     Route: 058
     Dates: start: 2025
  3. ABRILADA [Suspect]
     Active Substance: ADALIMUMAB-AFZB
     Route: 058
     Dates: start: 20250425

REACTIONS (7)
  - Deafness [Unknown]
  - Pneumonia [Unknown]
  - Nasopharyngitis [Recovering/Resolving]
  - Sinusitis [Unknown]
  - Erythema [Recovering/Resolving]
  - Ocular hyperaemia [Unknown]
  - Eye swelling [Unknown]

NARRATIVE: CASE EVENT DATE: 20250101
